FAERS Safety Report 7985744-7 (Version None)
Quarter: 2011Q4

REPORT INFORMATION
  Report Type: 
  Country: None (occurrence: None)
  Receive Date: 20111216
  Receipt Date: 20111208
  Transmission Date: 20120403
  Serious: Yes (Other)
  Sender: FDA-Public Use
  Company Number: US-BAYER-200940113NA

PATIENT
  Age: 49 Year
  Sex: Female
  Weight: 95 kg

DRUGS (34)
  1. LASIX [Concomitant]
     Dosage: 40 MG, BID AFTER MEALS
     Route: 042
     Dates: start: 20061009, end: 20061011
  2. DOBUTREX [Concomitant]
     Dosage: 20 MCG/KG/HOUR
     Route: 042
     Dates: start: 20061013
  3. SYNTHROID [Concomitant]
     Dosage: 100 MCG, QD
     Route: 048
     Dates: start: 20061009
  4. ALBUMIN (HUMAN) [Concomitant]
     Dosage: 50 ML, UNK
     Route: 042
     Dates: start: 20061013, end: 20061013
  5. SUCCINYLCHOLINE CHLORIDE [Concomitant]
     Dosage: 100
     Route: 042
     Dates: start: 20061013, end: 20061013
  6. ISOPROTERENOL HCL [Concomitant]
     Dosage: TITRATED
     Route: 042
     Dates: start: 20061013, end: 20061013
  7. MIDAZOLAM [Concomitant]
     Dosage: 4 MG
     Route: 042
     Dates: start: 20061013, end: 20061013
  8. TOPROL-XL [Concomitant]
     Dosage: 50 MG, BID
     Route: 048
     Dates: end: 20061009
  9. METOPROLOL TARTRATE [Concomitant]
     Dosage: 100 MG, BID
     Route: 048
     Dates: start: 20061009
  10. LASIX [Concomitant]
     Dosage: 10 MG
     Route: 042
     Dates: start: 20061013, end: 20061013
  11. HEPARIN [Concomitant]
     Dosage: 10000 U
     Route: 042
     Dates: start: 20061013, end: 20061013
  12. PROTAMINE SULFATE [Concomitant]
     Dosage: 300 MG
     Route: 042
     Dates: start: 20061013, end: 20061013
  13. FRESH FROZEN PLASMA [Concomitant]
     Dosage: 1 U, ONCE
     Route: 042
  14. GLUCOTROL XL [Concomitant]
     Dosage: 10 MG, 30 MINUTES BEFORE MEALS
     Route: 048
     Dates: start: 20061011
  15. LEVOPHED [Concomitant]
     Dosage: TITRATED
     Route: 042
     Dates: start: 20061013, end: 20061013
  16. ETOMIDATE [Concomitant]
     Dosage: 20 MG
     Route: 042
     Dates: start: 20061013, end: 20061013
  17. RED BLOOD CELLS [Concomitant]
     Dosage: 1 U, ONCE
     Route: 042
     Dates: start: 20061013
  18. TRASYLOL [Suspect]
     Indication: ATRIAL SEPTAL DEFECT REPAIR
     Dosage: 200 ML PUMP PRIME
     Dates: start: 20061013, end: 20061013
  19. TRASYLOL [Suspect]
     Dosage: 200 CC, LOADING DOSE
     Route: 042
     Dates: start: 20061013, end: 20061013
  20. TRASYLOL [Suspect]
     Dosage: 50 ML/HOUR, INFUSION
     Route: 042
     Dates: start: 20061013, end: 20061013
  21. HEPARIN [Concomitant]
     Dosage: 6000 U
     Route: 042
     Dates: start: 20061013, end: 20061013
  22. MANNITOL [Concomitant]
     Dosage: 12.5 G
     Route: 042
     Dates: start: 20061013, end: 20061013
  23. HEPARIN [Concomitant]
     Dosage: 30000 U
     Route: 042
     Dates: start: 20061013, end: 20061013
  24. HEPARIN [Concomitant]
     Dosage: 4,000 U, PRIME
     Dates: start: 20061013, end: 20061013
  25. EPINEPHRINE [Concomitant]
     Dosage: TITRATED
     Route: 042
     Dates: start: 20061013, end: 20061013
  26. NORVASC [Concomitant]
     Dosage: 10 MG, QD
     Route: 048
     Dates: start: 20061009
  27. REGULAR INSULIN [Concomitant]
     Dosage: SLIDING SCALE
     Route: 058
     Dates: start: 20061010
  28. PANCURONIUM [Concomitant]
     Dosage: 10
     Route: 042
     Dates: start: 20061013, end: 20061013
  29. TRASYLOL [Suspect]
     Indication: CORONARY ARTERY BYPASS
     Dosage: 1 ML, ONCE
     Route: 042
     Dates: start: 20061013, end: 20061013
  30. DIOVAN [Concomitant]
     Dosage: 160 MG, BID
     Route: 048
     Dates: start: 20061009
  31. LASIX [Concomitant]
     Dosage: 40 MG, QD
     Route: 042
     Dates: start: 20061012
  32. FENTANYL [Concomitant]
     Dosage: 1,000 MCG
     Route: 042
     Dates: start: 20061013, end: 20061013
  33. LEVAQUIN [Concomitant]
     Dosage: UNK
     Route: 042
     Dates: start: 20061013, end: 20061013
  34. ISOVUE-300 [Concomitant]
     Indication: CATHETERISATION CARDIAC
     Dosage: 190 ML
     Dates: start: 20061010

REACTIONS (12)
  - RENAL INJURY [None]
  - INJURY [None]
  - RENAL FAILURE [None]
  - RENAL IMPAIRMENT [None]
  - STRESS [None]
  - PAIN [None]
  - EMOTIONAL DISTRESS [None]
  - MULTI-ORGAN FAILURE [None]
  - ANXIETY [None]
  - FEAR [None]
  - ANHEDONIA [None]
  - UNEVALUABLE EVENT [None]
